FAERS Safety Report 7428459-6 (Version None)
Quarter: 2011Q2

REPORT INFORMATION
  Report Type: 
  Country: None (occurrence: None)
  Receive Date: 20110421
  Receipt Date: 20110413
  Transmission Date: 20111010
  Serious: Yes (Hospitalization, Other)
  Sender: FDA-Public Use
  Company Number: DE-ABBOTT-11P-062-0718833-00

PATIENT
  Age: 67 Year
  Sex: Male

DRUGS (3)
  1. CLOTRIMAZOL [Concomitant]
     Indication: PRODUCT USED FOR UNKNOWN INDICATION
  2. BETAMETAS. VAL 0.2-DAC BASIS CREAM AD 200.0 [Concomitant]
     Indication: PRODUCT USED FOR UNKNOWN INDICATION
  3. HUMIRA [Suspect]
     Indication: RHEUMATOID ARTHRITIS
     Route: 058
     Dates: start: 20101011, end: 20110215

REACTIONS (3)
  - RASH [None]
  - SKIN PAPILLOMA [None]
  - HUMERUS FRACTURE [None]
